FAERS Safety Report 9684446 (Version 1)
Quarter: 2013Q4

REPORT INFORMATION
  Report Type: Spontaneous
  Country: CA (occurrence: CA)
  Receive Date: 20131112
  Receipt Date: 20131112
  Transmission Date: 20140711
  Serious: Yes (Other)
  Sender: FDA-Public Use
  Company Number: CA-009507513-1311CAN004453

PATIENT
  Age: 63 Year
  Sex: Female

DRUGS (2)
  1. VICTRELIS TRIPLE [Suspect]
     Indication: HEPATITIS C
     Dosage: 100 MICROGRAM, UNK
     Route: 065
     Dates: start: 201308
  2. VICTRELIS TRIPLE [Suspect]
     Dosage: 2400 MG, UNK
     Route: 048
     Dates: start: 201308

REACTIONS (6)
  - Blindness unilateral [Not Recovered/Not Resolved]
  - Malaise [Unknown]
  - Activities of daily living impaired [Unknown]
  - Suicidal ideation [Unknown]
  - Hypertension [Unknown]
  - Bronchitis [Unknown]
